FAERS Safety Report 6115011-8 (Version None)
Quarter: 2009Q1

REPORT INFORMATION
  Report Type: 
  Country: None (occurrence: None)
  Receive Date: 20090313
  Receipt Date: 20090306
  Transmission Date: 20090719
  Serious: Yes (Life-Threatening, Disabling, Other)
  Sender: FDA-Public Use
  Company Number: A0771857A

PATIENT
  Age: 16 Year
  Sex: Female

DRUGS (3)
  1. LAMOTRIGINE [Suspect]
     Indication: BIPOLAR DISORDER
     Dosage: 400MG PER DAY
     Route: 048
     Dates: start: 20080101
  2. ABILIFY [Concomitant]
  3. TRAZODONE HCL [Concomitant]

REACTIONS (1)
  - GLOMERULONEPHRITIS [None]
